FAERS Safety Report 12806977 (Version 1)
Quarter: 2016Q4

REPORT INFORMATION
  Report Type: Spontaneous
  Country: US (occurrence: US)
  Receive Date: 20161003
  Receipt Date: 20161003
  Transmission Date: 20170207
  Serious: Yes (Hospitalization, Other)
  Sender: FDA-Public Use
  Company Number: None

PATIENT
  Age: 31 Year
  Sex: Female
  Weight: 55.35 kg

DRUGS (3)
  1. HYOSCYAMINE 0.125MG SUBLINGUAL [Suspect]
     Active Substance: HYOSCYAMINE
     Indication: ABDOMINAL PAIN
     Dosage: ?          QUANTITY:3 TABLET(S);?
     Route: 060
  2. TYLENOL [Concomitant]
     Active Substance: ACETAMINOPHEN
  3. MULTIVITAMIN [Concomitant]
     Active Substance: VITAMINS

REACTIONS (17)
  - Vision blurred [None]
  - Restlessness [None]
  - Confusional state [None]
  - Feeling abnormal [None]
  - Body temperature fluctuation [None]
  - Nausea [None]
  - Vomiting [None]
  - Hallucination, visual [None]
  - Incoherent [None]
  - Dizziness [None]
  - Dry mouth [None]
  - Oxygen saturation decreased [None]
  - Pollakiuria [None]
  - Disorientation [None]
  - Abdominal discomfort [None]
  - Choking [None]
  - Abdominal pain [None]

NARRATIVE: CASE EVENT DATE: 20160917
